FAERS Safety Report 24467628 (Version 1)
Quarter: 2024Q4

REPORT INFORMATION
  Report Type: Report from Study
  Country: US (occurrence: US)
  Receive Date: 20241018
  Receipt Date: 20241018
  Transmission Date: 20250115
  Serious: No
  Sender: ROCHE
  Company Number: US-ROCHE-3556939

PATIENT
  Sex: Female

DRUGS (5)
  1. XOLAIR [Suspect]
     Active Substance: OMALIZUMAB
     Indication: Urticaria
     Route: 065
  2. KETOTIFEN [Suspect]
     Active Substance: KETOTIFEN
     Indication: Product used for unknown indication
     Route: 048
  3. CROMOLYN [Concomitant]
     Active Substance: CROMOLYN
  4. BENADRYL [Concomitant]
     Active Substance: DIPHENHYDRAMINE HYDROCHLORIDE
  5. IVERMECTIN [Concomitant]
     Active Substance: IVERMECTIN

REACTIONS (12)
  - COVID-19 [Unknown]
  - Weight increased [Unknown]
  - Peripheral swelling [Unknown]
  - Abdominal distension [Unknown]
  - Pharyngeal swelling [Unknown]
  - Cystitis [Unknown]
  - Joint range of motion decreased [Unknown]
  - Urinary retention [Unknown]
  - Complement factor C4 increased [Unknown]
  - Alopecia [Unknown]
  - Drug ineffective [Unknown]
  - Cystitis interstitial [Unknown]
